FAERS Safety Report 9170747 (Version 2)
Quarter: 2013Q2

REPORT INFORMATION
  Report Type: Spontaneous
  Country: IT (occurrence: None)
  Receive Date: 20130311
  Receipt Date: 20130528
  Transmission Date: 20140414
  Serious: Yes (Death, Hospitalization)
  Sender: FDA-Public Use
  Company Number: SYM-2013-01410

PATIENT
  Age: 66 Year
  Sex: Male

DRUGS (10)
  1. 5-FU (FLUOROURACIL) [Suspect]
     Indication: COLORECTAL CANCER METASTATIC
     Route: 040
     Dates: start: 20121211, end: 20121211
  2. AFLIBERCEPT (AFLIBERCEPT) SOLUTION FOR INJECTION [Suspect]
     Indication: COLORECTAL CANCER METASTATIC
     Dosage: 215 MG, EVERY OTHER WEEK, INTRAVENOUS (NOT OTHERWISE SPECIFIED)
     Route: 042
     Dates: start: 20121211, end: 20121211
  3. IRINOTECAN (IRINOTECAN) [Suspect]
     Indication: COLORECTAL CANCER METASTATIC
     Dosage: 285 MG, EVERY OTHER WEEK, INTRAVENOUS (NOT OTHERWISE SPECIFIED)
     Route: 042
     Dates: start: 20121211, end: 20121211
  4. LEUCOVORIN [Suspect]
     Indication: COLORECTAL CANCER METASTATIC
     Dosage: 320 MG, EVERY OTHER WEEK, INTRAVENOUS (NOT OTHEWISE SPECIFIED)
     Route: 042
     Dates: start: 20121211, end: 20121211
  5. OMEPRAZOLE (OMERAZOLE) (OMEPRAZOLE) [Concomitant]
  6. LOPERAMIDE (LOPERAMIDE) (LOPERAMIDE) [Concomitant]
  7. SEROTONIN ANTAGONISTS (SEROTONIN ANTAGONISTS) [Concomitant]
  8. G-CSF (GRANULOCYTE COLONY STIMULATING FACTOR) (GRANULOCYTE COLONY STIMULATING FACTOR) [Concomitant]
  9. CORTICOSTEROID NOS (CORTICOSTEROID NOS) (CORTICOSTEROID NOS) [Concomitant]
  10. ANTIHISTAMINES (ANTISTAMINES) [Concomitant]

REACTIONS (2)
  - Stomatitis haemorrhagic [None]
  - Pain [None]
